FAERS Safety Report 12442513 (Version 1)
Quarter: 2016Q2

REPORT INFORMATION
  Report Type: Spontaneous
  Country: US (occurrence: None)
  Receive Date: 20160606
  Receipt Date: 20160606
  Transmission Date: 20160815
  Serious: No
  Sender: FDA-Public Use
  Company Number: None

PATIENT
  Age: 53 Year
  Sex: Male
  Weight: 90.72 kg

DRUGS (3)
  1. RESTASIS [Suspect]
     Active Substance: CYCLOSPORINE
     Indication: IRIDOCORNEAL ENDOTHELIAL SYNDROME
     Dosage: 1 DROP(S) EVERY 12 HOURS, INTO THE EYE
     Route: 031
     Dates: start: 20160511
  2. MURO 128 [Concomitant]
     Active Substance: SODIUM CHLORIDE
  3. VITAMIN D3 [Concomitant]
     Active Substance: CHOLECALCIFEROL

REACTIONS (1)
  - Ageusia [None]

NARRATIVE: CASE EVENT DATE: 20160515
